FAERS Safety Report 15498481 (Version 3)
Quarter: 2019Q3

REPORT INFORMATION
  Report Type: Spontaneous
  Country: US (occurrence: US)
  Receive Date: 20181015
  Receipt Date: 20190718
  Transmission Date: 20191004
  Serious: Yes (Other)
  Sender: FDA-Public Use
  Company Number: US-PFIZER INC-2018416263

PATIENT
  Age: 56 Year
  Sex: Female

DRUGS (1)
  1. LYRICA [Suspect]
     Active Substance: PREGABALIN
     Indication: MUSCLE SPASMS
     Dosage: 75 MG, 3X/DAY (AS NEEDED)
     Route: 048

REACTIONS (4)
  - Off label use [Unknown]
  - Drug dependence [Unknown]
  - Memory impairment [Unknown]
  - Product use in unapproved indication [Unknown]
